FAERS Safety Report 4311265-9 (Version None)
Quarter: 2004Q1

REPORT INFORMATION
  Report Type: 
  Country: None (occurrence: None)
  Receive Date: 20040302
  Receipt Date: 20031106
  Transmission Date: 20041129
  Serious: Yes (Hospitalization)
  Sender: FDA-Public Use
  Company Number: BDI-005606

PATIENT
  Age: 47 Year

DRUGS (2)
  1. ISOVUE-300 [Suspect]
     Indication: CHEST PAIN
     Dosage: 135 ML ONCE IV
     Dates: start: 20031031, end: 20031031
  2. ISOVUE-300 [Suspect]
     Indication: COMPUTERISED TOMOGRAM
     Dosage: 135 ML ONCE IV
     Dates: start: 20031031, end: 20031031

REACTIONS (4)
  - ANGIONEUROTIC OEDEMA [None]
  - CHEST PAIN [None]
  - PRURITUS [None]
  - URTICARIA [None]
